FAERS Safety Report 25417430 (Version 2)
Quarter: 2025Q3

REPORT INFORMATION
  Report Type: Spontaneous
  Country: AU (occurrence: AU)
  Receive Date: 20250610
  Receipt Date: 20250728
  Transmission Date: 20251021
  Serious: Yes (Death, Hospitalization, Other)
  Sender: AMGEN
  Company Number: AU-BEH-2025208275

PATIENT
  Age: 64 Year
  Sex: Female

DRUGS (1)
  1. TAVNEOS [Suspect]
     Active Substance: AVACOPAN
     Indication: Anti-neutrophil cytoplasmic antibody positive vasculitis
     Route: 065
     Dates: start: 20241111, end: 20241125

REACTIONS (32)
  - Intestinal perforation [Unknown]
  - Death [Fatal]
  - Diverticulitis [Unknown]
  - Small intestinal obstruction [Unknown]
  - Peritonitis [Unknown]
  - Loss of consciousness [Recovered/Resolved]
  - Generalised tonic-clonic seizure [Recovered/Resolved]
  - Hemiparesis [Unknown]
  - Cytomegalovirus viraemia [Unknown]
  - Pneumonia cytomegaloviral [Unknown]
  - Respiratory failure [Unknown]
  - Osteomyelitis [Unknown]
  - Extradural abscess [Unknown]
  - Spinal cord compression [Unknown]
  - Compression fracture [Unknown]
  - Post procedural complication [Unknown]
  - Post procedural haemorrhage [Unknown]
  - Hypotension [Unknown]
  - Haemoglobin decreased [Not Recovered/Not Resolved]
  - Wound secretion [Unknown]
  - Neurologic neglect syndrome [Unknown]
  - Stoma site haemorrhage [Unknown]
  - Aspergillus infection [Unknown]
  - Fungal infection [Unknown]
  - Staphylococcal infection [Unknown]
  - Asthenia [Unknown]
  - Chest pain [Unknown]
  - Pulmonary haemorrhage [Unknown]
  - Respiratory syncytial virus infection [Unknown]
  - Pneumonia [Unknown]
  - Nausea [Unknown]
  - Vomiting [Unknown]

NARRATIVE: CASE EVENT DATE: 20241201
